FAERS Safety Report 6326949-0 (Version None)
Quarter: 2009Q3

REPORT INFORMATION
  Report Type: 
  Country: None (occurrence: None)
  Receive Date: 20090825
  Receipt Date: 20090812
  Transmission Date: 20100115
  Serious: Yes (Other)
  Sender: FDA-Public Use
  Company Number: PHHY2009FR17297

PATIENT
  Age: 65 Year
  Sex: Female

DRUGS (3)
  1. FRACTAL [Suspect]
     Indication: HYPERCHOLESTEROLAEMIA
     Dosage: 80 MG, QD
     Route: 048
     Dates: start: 20041001
  2. LOGROTON [Concomitant]
     Indication: HYPERTENSION
     Dosage: 1 DF PER DAY
  3. LEVOTHYROX [Concomitant]
     Indication: HYPOTHYROIDISM
     Dosage: 75 UG, UNK

REACTIONS (5)
  - BLOOD CREATINE PHOSPHOKINASE INCREASED [None]
  - BLOOD CREATININE INCREASED [None]
  - MONOPLEGIA [None]
  - MUSCLE SPASMS [None]
  - PARAESTHESIA [None]
